FAERS Safety Report 22052969 (Version 1)
Quarter: 2023Q1

REPORT INFORMATION
  Report Type: Spontaneous
  Country: US (occurrence: US)
  Receive Date: 20230302
  Receipt Date: 20230302
  Transmission Date: 20230417
  Serious: Yes (Hospitalization, Other)
  Sender: FDA-Public Use
  Company Number: US-ABBVIE-4323981

PATIENT
  Age: 70 Year
  Sex: Female
  Weight: 64.863 kg

DRUGS (9)
  1. CREON [Suspect]
     Active Substance: PANCRELIPASE AMYLASE\PANCRELIPASE LIPASE\PANCRELIPASE PROTEASE
     Indication: Pancreatectomy
     Dosage: TWO CAPSULES TWO TIMES A DAY WITH MEAL AND AT BEDTIME??FORM STRENGTH: 36000 INTERNATIONAL UNITS M...
     Route: 048
     Dates: start: 2011, end: 202301
  2. DULOXETINE [Concomitant]
     Active Substance: DULOXETINE
     Indication: Product used for unknown indication
  3. TRAZODONE [Concomitant]
     Active Substance: TRAZODONE HYDROCHLORIDE
     Indication: Sleep disorder
  4. BUPROPION [Concomitant]
     Active Substance: BUPROPION
     Indication: Depression
  5. PRAVASTATIN [Concomitant]
     Active Substance: PRAVASTATIN
     Indication: Blood cholesterol abnormal
  6. MECLIZINE HYDROCHLORIDE [Concomitant]
     Active Substance: MECLIZINE HYDROCHLORIDE
     Indication: Dizziness
  7. CALCIUM [Concomitant]
     Active Substance: CALCIUM
     Indication: Product used for unknown indication
  8. Lantus 14 units [Concomitant]
     Indication: Product used for unknown indication
  9. Zantac 10000 units [Concomitant]
     Indication: Diarrhoea

REACTIONS (5)
  - Hepatic enzyme abnormal [Recovering/Resolving]
  - Loss of consciousness [Recovering/Resolving]
  - Diarrhoea [Recovering/Resolving]
  - Blood glucose decreased [Recovering/Resolving]
  - Blood glucose abnormal [Recovering/Resolving]

NARRATIVE: CASE EVENT DATE: 20230101
